FAERS Safety Report 9946533 (Version 2)
Quarter: 2014Q1

REPORT INFORMATION
  Report Type: Spontaneous
  Country: US (occurrence: US)
  Receive Date: 20140303
  Receipt Date: 20140303
  Transmission Date: 20141002
  Serious: No
  Sender: FDA-Public Use
  Company Number: US-AMGEN-USASP2013077018

PATIENT
  Age: 61 Year
  Sex: Female

DRUGS (12)
  1. ENBREL [Suspect]
     Indication: RHEUMATOID ARTHRITIS
     Dosage: 50 MG, QWK
     Route: 058
     Dates: start: 201309
  2. METHOTREXATE [Concomitant]
     Dosage: UNK
  3. FOLBEE [Concomitant]
     Dosage: UNK
  4. NABUMETONE [Concomitant]
     Dosage: UNK
  5. METOPROLOL [Concomitant]
     Dosage: UNK
  6. CALTRATE + VITAMIN D [Concomitant]
     Dosage: UNK
  7. GLUCOSAMINE + CHONDROITIN          /01430901/ [Concomitant]
     Dosage: UNK
  8. VITAMIN B6 [Concomitant]
     Dosage: UNK
  9. VITAMIN B12                        /00056201/ [Concomitant]
     Dosage: UNK
  10. VITAMIN C                          /00008001/ [Concomitant]
     Dosage: UNK
  11. FISH OIL [Concomitant]
     Dosage: UNK
  12. TRAMADOL [Concomitant]
     Dosage: UNK

REACTIONS (3)
  - Injection site bruising [Recovered/Resolved]
  - Injection site swelling [Unknown]
  - Injection site erythema [Unknown]
